FAERS Safety Report 4747163-6 (Version None)
Quarter: 2005Q3

REPORT INFORMATION
  Report Type: 
  Country: None (occurrence: None)
  Receive Date: 20050815
  Receipt Date: 20050803
  Transmission Date: 20060218
  Serious: Yes (Other)
  Sender: FDA-Public Use
  Company Number: WAES 0507USA01205

PATIENT
  Sex: Female

DRUGS (2)
  1. VIOXX [Suspect]
     Indication: SCOLIOSIS
     Dosage: 25 MG/DAILY/PO
     Route: 048
     Dates: start: 20010511, end: 20030516
  2. ASPIRIN [Concomitant]

REACTIONS (1)
  - CEREBROVASCULAR ACCIDENT [None]
